FAERS Safety Report 12476349 (Version 1)
Quarter: 2016Q2

REPORT INFORMATION
  Report Type: Spontaneous
  Country: US (occurrence: US)
  Receive Date: 20160617
  Receipt Date: 20160617
  Transmission Date: 20160815
  Serious: Yes (Other)
  Sender: FDA-Public Use
  Company Number: US-BRAINTREE LABORATORIES-160437

PATIENT
  Age: 57 Year
  Sex: Female

DRUGS (1)
  1. SUPREP BOWEL PREP [Suspect]
     Active Substance: MAGNESIUM SULFATE\POTASSIUM SULFATE\SODIUM SULFATE
     Indication: COLONOSCOPY
     Dosage: 0.75 X 6OZ.BOTTLE
     Route: 048
     Dates: start: 20160609, end: 20160609

REACTIONS (1)
  - Non-cardiac chest pain [None]

NARRATIVE: CASE EVENT DATE: 20160609
